FAERS Safety Report 4276127-4 (Version None)
Quarter: 2004Q1

REPORT INFORMATION
  Report Type: 
  Country: None (occurrence: None)
  Receive Date: 20040121
  Receipt Date: 20031020
  Transmission Date: 20041129
  Serious: No
  Sender: FDA-Public Use
  Company Number: US-GLAXOSMITHKLINE-A0431114A

PATIENT
  Age: 25 Year
  Sex: Female
  Weight: 49.5 kg

DRUGS (2)
  1. VALTREX [Suspect]
     Dosage: 500MG PER DAY
     Route: 048
     Dates: start: 20030701
  2. DEPO-PROVERA [Concomitant]
     Route: 030

REACTIONS (1)
  - VAGINAL HAEMORRHAGE [None]
